FAERS Safety Report 17369656 (Version 1)
Quarter: 2020Q1

REPORT INFORMATION
  Report Type: Spontaneous
  Country: SE (occurrence: SE)
  Receive Date: 20200204
  Receipt Date: 20200204
  Transmission Date: 20200409
  Serious: Yes (Death)
  Sender: FDA-Public Use
  Company Number: SE-ACCORD-171740

PATIENT
  Age: 65 Year
  Sex: Female

DRUGS (7)
  1. JARDIANCE [Concomitant]
     Active Substance: EMPAGLIFLOZIN
     Dates: start: 20160120, end: 202001
  2. RISPERDAL [Concomitant]
     Active Substance: RISPERIDONE
     Dates: start: 20060530, end: 202001
  3. METFORMIN [Concomitant]
     Active Substance: METFORMIN HYDROCHLORIDE
     Dates: start: 20010221, end: 202001
  4. SIMVASTATIN. [Concomitant]
     Active Substance: SIMVASTATIN
     Dates: start: 20101020, end: 202001
  5. CITALOPRAM [Concomitant]
     Active Substance: CITALOPRAM HYDROBROMIDE
     Dates: start: 20000215, end: 202001
  6. TIMOSAN [Concomitant]
     Active Substance: TIMOLOL MALEATE
     Dates: start: 20150326, end: 202001
  7. CLOZAPINE. [Suspect]
     Active Substance: CLOZAPINE
     Indication: SCHIZOPHRENIA
     Dosage: 0+0+400+0 MG
     Route: 048
     Dates: start: 20000511, end: 202001

REACTIONS (1)
  - Pericardial effusion [Fatal]

NARRATIVE: CASE EVENT DATE: 20191212
